FAERS Safety Report 21520698 (Version 4)
Quarter: 2022Q4

REPORT INFORMATION
  Report Type: Spontaneous
  Country: IN (occurrence: IN)
  Receive Date: 20221028
  Receipt Date: 20221230
  Transmission Date: 20230112
  Serious: Yes (Hospitalization, Other)
  Sender: FDA-Public Use
  Company Number: IN-PFIZER INC-PV202200091172

PATIENT
  Age: 61 Year
  Sex: Male
  Weight: 77.6 kg

DRUGS (3)
  1. DACOMITINIB [Suspect]
     Active Substance: DACOMITINIB
     Dosage: 45 MG
     Dates: start: 202201
  2. DACOMITINIB [Suspect]
     Active Substance: DACOMITINIB
     Dosage: 30 MG, DAILY
     Route: 048
     Dates: start: 202202
  3. DOXYCYCLINE [Concomitant]
     Active Substance: DOXYCYCLINE
     Dosage: UNK, 1X/DAY

REACTIONS (13)
  - Abdominal pain upper [Unknown]
  - Carcinoembryonic antigen increased [Unknown]
  - Palmar-plantar erythrodysaesthesia syndrome [Unknown]
  - Constipation [Unknown]
  - Vertigo [Unknown]
  - Blood pressure increased [Unknown]
  - Haemoglobin decreased [Unknown]
  - Alanine aminotransferase increased [Unknown]
  - Abdominal pain [Unknown]
  - Blood thyroid stimulating hormone increased [Unknown]
  - Blood albumin decreased [Unknown]
  - Neoplasm progression [Unknown]
  - Dyspnoea [Unknown]

NARRATIVE: CASE EVENT DATE: 20221025
